FAERS Safety Report 24905619 (Version 1)
Quarter: 2025Q1

REPORT INFORMATION
  Report Type: Report from Study
  Country: US (occurrence: US)
  Receive Date: 20250130
  Receipt Date: 20250130
  Transmission Date: 20250409
  Serious: No
  Sender: HRA PHARMA
  Company Number: US-ORG100014127-2024000126

PATIENT
  Age: 62 Year
  Sex: Female

DRUGS (2)
  1. METOPIRONE [Suspect]
     Active Substance: METYRAPONE
     Indication: Adrenal gland cancer
     Dosage: 250 MG: TAKE 2 CAPSULES BY MOUTH THREE TIMES DAIL
     Dates: start: 20240419
  2. METOPIRONE [Suspect]
     Active Substance: METYRAPONE
     Indication: Adrenal gland cancer
     Dosage: 4 CAPSULES IN THE MORNING, 3 CAPSULES MIDDAY, 3 CAPSULES AT BEDTIME OR AS DIRECTED
     Dates: end: 2024

REACTIONS (1)
  - Off label use [Recovered/Resolved]

NARRATIVE: CASE EVENT DATE: 20240419
